FAERS Safety Report 17399092 (Version 2)
Quarter: 2020Q3

REPORT INFORMATION
  Report Type: Report from Study
  Country: JP (occurrence: JP)
  Receive Date: 20200210
  Receipt Date: 20200923
  Transmission Date: 20201102
  Serious: Yes (Death, Hospitalization, Other)
  Sender: FDA-Public Use
  Company Number: JP-AMGEN-JPNCT2018113215

PATIENT
  Age: 76 Year
  Sex: Male

DRUGS (42)
  1. CEFTRIAXONE SODIUM. [Concomitant]
     Active Substance: CEFTRIAXONE SODIUM
     Dosage: UNK
     Route: 065
     Dates: start: 20180120, end: 20180126
  2. DIART [Concomitant]
     Active Substance: AZOSEMIDE
     Dosage: 15 MG
     Route: 048
  3. CEFCAPENE PIVOXIL HYDROCHLORIDE [Concomitant]
     Active Substance: CEFCAPENE PIVOXIL HYDROCHLORIDE
     Dosage: 300 MG
     Route: 048
     Dates: start: 20180126, end: 20180128
  4. DARBEPOETIN ALFA [Suspect]
     Active Substance: DARBEPOETIN ALFA
     Indication: MYELODYSPLASTIC SYNDROME
     Dosage: 240 MICROGRAM, QWK
     Route: 065
     Dates: start: 20170508, end: 20180925
  5. BAYASPIRIN [Concomitant]
     Active Substance: ASPIRIN
     Indication: CAROTID ARTERY STENOSIS
     Dosage: 100 MILLIGRAM
     Route: 048
  6. BAYASPIRIN [Concomitant]
     Active Substance: ASPIRIN
     Dosage: 100 MG
     Route: 048
     Dates: end: 20191016
  7. REBAMIPIDE [Concomitant]
     Active Substance: REBAMIPIDE
     Dosage: 300 MG
     Route: 048
     Dates: start: 20180224, end: 20180224
  8. LANSOPRAZOLE. [Concomitant]
     Active Substance: LANSOPRAZOLE
     Dosage: 15 MG
     Route: 048
     Dates: start: 20190124
  9. DARBEPOETIN ALFA [Suspect]
     Active Substance: DARBEPOETIN ALFA
     Dosage: 240 MICROGRAM, QWK
     Route: 058
     Dates: start: 20181009, end: 20190102
  10. DIART [Concomitant]
     Active Substance: AZOSEMIDE
     Indication: CARDIAC FAILURE CHRONIC
     Dosage: 15 MG
     Route: 048
  11. CRESTOR OD [Concomitant]
     Active Substance: ROSUVASTATIN CALCIUM
     Dosage: 2.5 MG
     Route: 048
     Dates: end: 20191016
  12. CARVEDILOL. [Concomitant]
     Active Substance: CARVEDILOL
     Dosage: 7.5 MG
     Route: 048
  13. VALSARTAN. [Concomitant]
     Active Substance: VALSARTAN
     Indication: HYPERTENSION
     Dosage: 40 MG
     Route: 048
  14. CEFDINIR. [Concomitant]
     Active Substance: CEFDINIR
     Dosage: 300 MG
     Route: 048
     Dates: start: 20180224, end: 20180226
  15. DAIKENCHUTO [Concomitant]
     Active Substance: HERBALS
     Indication: CONSTIPATION
     Dosage: 7.5 G
     Route: 048
     Dates: start: 20180227, end: 20180319
  16. ADONA [Concomitant]
     Dosage: 100 MILLIGRAM  *SINGLE
     Route: 065
     Dates: start: 20180227, end: 20180307
  17. CRESTOR OD [Concomitant]
     Active Substance: ROSUVASTATIN CALCIUM
     Dosage: 2.5 MG
     Route: 048
  18. CRESTOR OD [Concomitant]
     Active Substance: ROSUVASTATIN CALCIUM
     Dosage: 2.5 MG
     Route: 048
  19. VALSARTAN. [Concomitant]
     Active Substance: VALSARTAN
     Dosage: 40 MG
     Route: 048
  20. FLUCONAZOLE. [Concomitant]
     Active Substance: FLUCONAZOLE
     Dosage: 200 MG
     Route: 048
     Dates: start: 20190124
  21. CRESTOR OD [Concomitant]
     Active Substance: ROSUVASTATIN CALCIUM
     Indication: DYSLIPIDAEMIA
     Dosage: 2.5 MG
     Route: 048
  22. VALSARTAN. [Concomitant]
     Active Substance: VALSARTAN
     Dosage: 40 MG
     Route: 048
  23. FEBURIC [Concomitant]
     Active Substance: FEBUXOSTAT
     Dosage: 20 MG
     Route: 048
     Dates: start: 20190124, end: 20190130
  24. SEISHOKU [Concomitant]
     Active Substance: SODIUM CHLORIDE
     Dosage: 100 ML
     Route: 065
     Dates: start: 20180227, end: 20180307
  25. TRANSAMIN [Concomitant]
     Active Substance: TRANEXAMIC ACID
     Dosage: 1 G
     Route: 065
     Dates: start: 20180227, end: 20180307
  26. BAYASPIRIN [Concomitant]
     Active Substance: ASPIRIN
     Dosage: 100 MG
     Route: 048
  27. BAYASPIRIN [Concomitant]
     Active Substance: ASPIRIN
     Dosage: 100 MG
     Route: 048
  28. DIART [Concomitant]
     Active Substance: AZOSEMIDE
     Dosage: 15 MG
     Route: 048
  29. LOXOPROFEN SODIUM [Concomitant]
     Active Substance: LOXOPROFEN SODIUM
     Dosage: 180 MG
     Route: 048
     Dates: start: 20180224, end: 20180224
  30. BAKTAR [Concomitant]
     Active Substance: SULFAMETHOXAZOLE\TRIMETHOPRIM
     Dosage: UNK
     Route: 048
     Dates: start: 20190124
  31. ADONA [Concomitant]
     Dosage: 100 MG
     Route: 065
     Dates: start: 20180227, end: 20180307
  32. DARBEPOETIN ALFA [Suspect]
     Active Substance: DARBEPOETIN ALFA
     Dosage: 240 MICROGRAM
     Route: 065
     Dates: start: 20181009, end: 20190102
  33. DARBEPOETIN ALFA [Suspect]
     Active Substance: DARBEPOETIN ALFA
     Dosage: 240 MICROGRAM
     Route: 058
     Dates: start: 20170508, end: 20180925
  34. DIART [Concomitant]
     Active Substance: AZOSEMIDE
     Dosage: 15 MG
     Route: 048
     Dates: end: 20190103
  35. CARVEDILOL. [Concomitant]
     Active Substance: CARVEDILOL
     Indication: CARDIAC FAILURE CHRONIC
     Dosage: 7.5 MG
     Route: 048
  36. CARVEDILOL. [Concomitant]
     Active Substance: CARVEDILOL
     Dosage: 7.5 MG
     Route: 048
  37. VALSARTAN. [Concomitant]
     Active Substance: VALSARTAN
     Dosage: 40 MG
     Route: 048
  38. LEVOFLOXACIN. [Concomitant]
     Active Substance: LEVOFLOXACIN
     Dosage: 500 MG
     Route: 048
     Dates: start: 20180310, end: 20180322
  39. CEFAZOLIN SODIUM. [Concomitant]
     Active Substance: CEFAZOLIN SODIUM
     Dosage: 2 G
     Route: 065
     Dates: start: 20180227, end: 20180301
  40. DARBEPOETIN ALFA [Suspect]
     Active Substance: DARBEPOETIN ALFA
     Dosage: 240 MICROGRAM
     Route: 058
     Dates: start: 20181009, end: 20190102
  41. CARVEDILOL. [Concomitant]
     Active Substance: CARVEDILOL
     Dosage: 7.5 MG
     Route: 048
  42. TAZOPIPE [Concomitant]
     Active Substance: PIPERACILLIN SODIUM\TAZOBACTAM SODIUM
     Dosage: 13.5 G
     Route: 065
     Dates: start: 20180302, end: 20180309

REACTIONS (7)
  - Incarcerated inguinal hernia [Recovered/Resolved]
  - Pneumonia [Recovered/Resolved]
  - Blood pressure increased [Recovered/Resolved]
  - Post procedural haematoma [Recovered/Resolved]
  - Refractory anaemia with an excess of blasts [Fatal]
  - Post procedural haemorrhage [Recovered/Resolved]
  - Postoperative abscess [Recovered/Resolved]

NARRATIVE: CASE EVENT DATE: 20180120
